FAERS Safety Report 7385174-5 (Version None)
Quarter: 2011Q1

REPORT INFORMATION
  Report Type: 
  Country: None (occurrence: None)
  Receive Date: 20110330
  Receipt Date: 20110322
  Transmission Date: 20110831
  Serious: Yes (Hospitalization)
  Sender: FDA-Public Use
  Company Number: US-GENENTECH-314535

PATIENT
  Sex: Female

DRUGS (6)
  1. SYMBICORT [Concomitant]
     Indication: ASTHMA
     Dosage: UNK
     Route: 055
  2. ALBUTEROL INHALER [Concomitant]
     Indication: ASTHMA
     Dosage: UNK
  3. SINGULAIR [Concomitant]
     Indication: ASTHMA
     Dosage: UNK
  4. QVAR 40 [Concomitant]
     Indication: ASTHMA
     Dosage: UNK
  5. NASONEX [Concomitant]
     Indication: RHINITIS ALLERGIC
     Dosage: UNK
  6. XOLAIR [Suspect]
     Indication: PRODUCT USED FOR UNKNOWN INDICATION
     Dosage: UNK
     Dates: start: 20110126

REACTIONS (1)
  - WHEEZING [None]
